FAERS Safety Report 4386383-X (Version None)
Quarter: 2004Q2

REPORT INFORMATION
  Report Type: 
  Country: None (occurrence: None)
  Receive Date: 20040625
  Receipt Date: 20040625
  Transmission Date: 20050107
  Serious: No
  Sender: FDA-Public Use
  Company Number: None

PATIENT
  Age: 71 Year
  Sex: Female
  Weight: 122.4712 kg

DRUGS (1)
  1. ARIXTRA [Suspect]
     Indication: DEEP VENOUS THROMBOSIS PROPHYLAXIS
     Dosage: 2.5 MG DAILY SC
     Route: 058
     Dates: start: 20040620, end: 20040623

REACTIONS (1)
  - CREATININE RENAL CLEARANCE DECREASED [None]
